FAERS Safety Report 7551418-X (Version None)
Quarter: 2011Q2

REPORT INFORMATION
  Report Type: 
  Country: None (occurrence: None)
  Receive Date: 20110616
  Receipt Date: 20110608
  Transmission Date: 20111010
  Serious: Yes (Death, Life-Threatening, Hospitalization, Other)
  Sender: FDA-Public Use
  Company Number: JP-ROCHE-779534

PATIENT
  Sex: Male
  Weight: 73 kg

DRUGS (32)
  1. PREDNISOLONE [Suspect]
     Route: 048
     Dates: start: 20110410
  2. ALFAROL [Concomitant]
     Dates: start: 20050101, end: 20110502
  3. CRESTOR [Concomitant]
     Route: 048
     Dates: start: 20110407, end: 20110502
  4. MICARDIS [Concomitant]
     Route: 054
     Dates: start: 20110509, end: 20110520
  5. BONALON [Concomitant]
     Route: 048
     Dates: start: 20110407, end: 20110502
  6. GANCICLOVIR [Concomitant]
     Dates: start: 20110508, end: 20110511
  7. IMURAN [Concomitant]
     Route: 048
  8. CELLCEPT [Suspect]
     Route: 048
     Dates: start: 20080512, end: 20080706
  9. CELLCEPT [Suspect]
     Route: 048
     Dates: start: 20080727, end: 20110420
  10. PERSANTIN [Concomitant]
     Dates: start: 20110413, end: 20110502
  11. NOVOLIN 70/30 [Concomitant]
     Dates: start: 20110511
  12. CELLCEPT [Suspect]
     Route: 048
     Dates: start: 20110512, end: 20110518
  13. SOLU-MEDROL [Suspect]
     Route: 042
     Dates: start: 20110407, end: 20110409
  14. ISONIAZID [Concomitant]
     Dates: start: 20110408, end: 20110502
  15. PYDOXAL [Concomitant]
     Dates: start: 20110408, end: 20110502
  16. LASIX [Concomitant]
     Dates: start: 20110411, end: 20110502
  17. VALGANCICLOVIR [Concomitant]
     Route: 048
     Dates: start: 20110511, end: 20110520
  18. DIOVAN [Concomitant]
     Route: 048
     Dates: start: 20050101, end: 20110502
  19. POSTERISAN [Concomitant]
     Dates: start: 20110407, end: 20110502
  20. FAMOTIDINE [Concomitant]
     Dates: start: 20110502
  21. LANSOPRAZOL [Concomitant]
     Dates: start: 20110501, end: 20110501
  22. PURSENNID [Concomitant]
     Route: 048
     Dates: start: 20110511, end: 20110520
  23. DEPAS [Concomitant]
     Route: 048
     Dates: start: 20050101
  24. CELLCEPT [Suspect]
     Dosage: DOSAGE WAS UNCERTAIN
     Route: 048
     Dates: start: 20050101, end: 20080511
  25. CELLCEPT [Suspect]
     Route: 048
     Dates: start: 20080707, end: 20080726
  26. AMLODIPINE [Concomitant]
     Route: 048
     Dates: start: 20050101, end: 20110502
  27. SULFAMETHOXAZOLE [Concomitant]
     Route: 048
     Dates: start: 20110429, end: 20110502
  28. CELLCEPT [Suspect]
     Route: 048
     Dates: start: 20110421, end: 20110511
  29. TRICHLORMETHIAZIDE [Concomitant]
     Route: 048
     Dates: start: 20110509, end: 20110520
  30. SLOW-K [Concomitant]
     Route: 048
     Dates: start: 20110517, end: 20110520
  31. MUCOSTA [Concomitant]
     Route: 048
     Dates: start: 20050101, end: 20110502
  32. ITRACONAZOLE [Concomitant]
     Route: 048
     Dates: start: 20050101, end: 20110502

REACTIONS (7)
  - DISSEMINATED INTRAVASCULAR COAGULATION [None]
  - CELLULITIS [None]
  - COMPARTMENT SYNDROME [None]
  - MULTI-ORGAN FAILURE [None]
  - SEPTIC SHOCK [None]
  - PLATELET COUNT DECREASED [None]
  - HERPES ZOSTER [None]
